FAERS Safety Report 10487549 (Version 2)
Quarter: 2014Q4

REPORT INFORMATION
  Report Type: Spontaneous
  Country: CN (occurrence: CN)
  Receive Date: 20141001
  Receipt Date: 20141029
  Transmission Date: 20150528
  Serious: Yes (Hospitalization, Other)
  Sender: FDA-Public Use
  Company Number: CN-BRISTOL-MYERS SQUIBB COMPANY-21435839

PATIENT
  Age: 58 Year
  Sex: Male

DRUGS (1)
  1. BARACLUDE [Suspect]
     Active Substance: ENTECAVIR
     Indication: HEPATITIS B
     Dosage: 1 DF=1 TAB/DAY
     Route: 048

REACTIONS (5)
  - Hepatic cirrhosis [Unknown]
  - Musculoskeletal discomfort [Unknown]
  - Dizziness [Unknown]
  - Arthralgia [Unknown]
  - Joint swelling [Unknown]

NARRATIVE: CASE EVENT DATE: 2011
